FAERS Safety Report 18341245 (Version 1)
Quarter: 2020Q4

REPORT INFORMATION
  Report Type: Spontaneous
  Country: DE (occurrence: DE)
  Receive Date: 20201003
  Receipt Date: 20201003
  Transmission Date: 20210113
  Serious: Yes (Death, Other)
  Sender: FDA-Public Use
  Company Number: DE-SHILPA MEDICARE LIMITED-SML-DE-2020-00376

PATIENT
  Age: 66 Year
  Sex: Male
  Weight: 70.4 kg

DRUGS (18)
  1. CISPLATIN. [Suspect]
     Active Substance: CISPLATIN
     Indication: METASTATIC NEOPLASM
     Dosage: CONSOLIDATING RADIOCHEMOTHERAPY
     Dates: start: 201912
  2. OLIMEL [Suspect]
     Active Substance: AMINO ACIDS\DEXTROSE\SOYBEAN OIL
     Dosage: DRUG REINTRODUCED AND DISCONTINUED
     Dates: start: 20200728, end: 20200728
  3. DOCETAXEL, UNKNOWN [Suspect]
     Active Substance: DOCETAXEL
     Indication: NEOPLASM RECURRENCE
     Dosage: DAY 1
     Dates: start: 201908
  4. CETUXIMAB. [Suspect]
     Active Substance: CETUXIMAB
     Indication: NEOPLASM RECURRENCE
     Dosage: DAY 15
  5. CISPLATIN. [Suspect]
     Active Substance: CISPLATIN
     Indication: NEOPLASM RECURRENCE
     Dosage: DAY 1
     Dates: start: 201908
  6. CETUXIMAB. [Suspect]
     Active Substance: CETUXIMAB
     Dosage: LOADING DOSE; DAY 1;
  7. CLEXANE [Suspect]
     Active Substance: ENOXAPARIN SODIUM
     Indication: ANTICOAGULANT THERAPY
     Dosage: SHOULD BE PAUSED ONE DAY BEFORE PORT INSTALLEMENT ON 07JUL.
  8. ATENOLOL. [Suspect]
     Active Substance: ATENOLOL
     Indication: PRODUCT USED FOR UNKNOWN INDICATION
  9. CETUXIMAB. [Suspect]
     Active Substance: CETUXIMAB
     Dosage: DAY 8
     Dates: start: 20190830
  10. PEMBROLIZUMAB. [Suspect]
     Active Substance: PEMBROLIZUMAB
     Indication: IMMUNOCHEMOTHERAPY
     Dates: start: 20200615, end: 20200622
  11. OLIMEL [Suspect]
     Active Substance: AMINO ACIDS\DEXTROSE\SOYBEAN OIL
     Dosage: ROUTE: CENTRAL VENOUS
     Dates: start: 20200713
  12. DOCETAXEL, UNKNOWN [Suspect]
     Active Substance: DOCETAXEL
     Indication: METASTATIC NEOPLASM
  13. CARBOPLATIN. [Suspect]
     Active Substance: CARBOPLATIN
     Indication: IMMUNOCHEMOTHERAPY
     Dosage: DAY 1 AND REPETITION ON DAY 21
     Dates: start: 20200615, end: 20200622
  14. OLIMEL [Suspect]
     Active Substance: AMINO ACIDS\DEXTROSE\SOYBEAN OIL
     Indication: PARENTERAL NUTRITION
     Dosage: INFUSION RUNS FROM 18:00 HOURS TO 06:00 HOURS, DOSE INCREASED
     Dates: start: 20200720, end: 20200727
  15. CERNEVIT [Suspect]
     Active Substance: VITAMINS
     Indication: PARENTERAL NUTRITION
     Dosage: ROUTE: CENTRAL VENOUS
     Route: 042
     Dates: start: 20200713, end: 20200728
  16. ADDEL TRACE [Suspect]
     Active Substance: ELECTROLYTES NOS\MINERALS
     Indication: PARENTERAL NUTRITION
     Dates: start: 20200713, end: 20200728
  17. CETUXIMAB. [Suspect]
     Active Substance: CETUXIMAB
     Indication: METASTATIC NEOPLASM
     Dosage: CONTINUATION OF CHEMOTHERAPY ON DAY 6 OF FIRST CYCLE
     Dates: start: 201909
  18. 5-FLUOROURACIL [Suspect]
     Active Substance: FLUOROURACIL
     Indication: IMMUNOCHEMOTHERAPY
     Dosage: OVER 96 HOURS
     Dates: start: 20200615, end: 20200622

REACTIONS (10)
  - Death [Fatal]
  - Pyrexia [Recovered/Resolved]
  - Tremor [Recovered/Resolved]
  - Tachycardia [Recovered/Resolved]
  - Pneumonia pneumococcal [Unknown]
  - Unresponsive to stimuli [Recovered/Resolved]
  - Eye movement disorder [Recovered/Resolved]
  - Cold sweat [Recovered/Resolved]
  - Chills [Recovered/Resolved]
  - Peripheral coldness [Recovered/Resolved]

NARRATIVE: CASE EVENT DATE: 20200726
